FAERS Safety Report 10354913 (Version 2)
Quarter: 2014Q3

REPORT INFORMATION
  Report Type: Spontaneous
  Country: JP (occurrence: JP)
  Receive Date: 20140731
  Receipt Date: 20140805
  Transmission Date: 20150326
  Serious: Yes (Hospitalization)
  Sender: FDA-Public Use
  Company Number: JP-GLAXOSMITHKLINE-B1018668A

PATIENT
  Age: 80 Year
  Sex: Female

DRUGS (2)
  1. ZOVIRAX [Suspect]
     Active Substance: ACYCLOVIR
     Indication: HERPES ZOSTER
     Route: 048
  2. VALTREX [Suspect]
     Active Substance: VALACYCLOVIR HYDROCHLORIDE
     Indication: HERPES ZOSTER
     Dosage: 1000MG THREE TIMES PER DAY
     Route: 048
     Dates: end: 2014

REACTIONS (5)
  - Depressed level of consciousness [Unknown]
  - Meningitis [Unknown]
  - Blood creatinine increased [Unknown]
  - Encephalopathy [Not Recovered/Not Resolved]
  - Renal failure acute [Not Recovered/Not Resolved]

NARRATIVE: CASE EVENT DATE: 2014
